FAERS Safety Report 7305260-5 (Version None)
Quarter: 2011Q1

REPORT INFORMATION
  Report Type: 
  Country: None (occurrence: None)
  Receive Date: 20110222
  Receipt Date: 20110215
  Transmission Date: 20110831
  Serious: Yes (Hospitalization)
  Sender: FDA-Public Use
  Company Number: US-SANOFI-AVENTIS-2011SA006428

PATIENT
  Age: 83 Year
  Sex: Male
  Weight: 71.36 kg

DRUGS (7)
  1. WARFARIN [Concomitant]
  2. DILTIAZEM [Concomitant]
  3. NEXIUM [Concomitant]
  4. DIGOXIN [Concomitant]
  5. PRAVASTATIN [Concomitant]
  6. MULTAQ [Suspect]
     Indication: ATRIAL FIBRILLATION
     Route: 065
     Dates: start: 20100401
  7. SIMVASTATIN [Concomitant]

REACTIONS (6)
  - FALL [None]
  - HIP FRACTURE [None]
  - UNDERDOSE [None]
  - LACERATION [None]
  - PNEUMONIA [None]
  - PERICARDITIS [None]
